FAERS Safety Report 9863832 (Version 1)
Quarter: 2014Q1

REPORT INFORMATION
  Report Type: Spontaneous
  Country: JP (occurrence: JP)
  Receive Date: 20140203
  Receipt Date: 20140203
  Transmission Date: 20141002
  Serious: Yes (Other)
  Sender: FDA-Public Use
  Company Number: JP-009507513-1402JPN000496

PATIENT
  Sex: 0

DRUGS (2)
  1. MENESIT TABLETS - 100 [Suspect]
     Dosage: DOSE INCREASED (DAILY DOSAGE UNKNOWN)
     Route: 048
  2. MENESIT TABLETS - 100 [Suspect]
     Dosage: DAILY DOSAGE UNKNOWN
     Route: 048

REACTIONS (2)
  - Loss of consciousness [Unknown]
  - Sudden onset of sleep [Unknown]
